FAERS Safety Report 7428519-X (Version None)
Quarter: 2011Q2

REPORT INFORMATION
  Report Type: 
  Country: None (occurrence: None)
  Receive Date: 20110413
  Receipt Date: 20110329
  Transmission Date: 20111010
  Serious: Yes (Other)
  Sender: FDA-Public Use
  Company Number: JP-2011-10568

PATIENT
  Age: 49 Year
  Sex: Male

DRUGS (4)
  1. SAMSCA [Suspect]
     Dosage: 7.5 MG MILLIGRAM(S), DAILY DOSE, ORAL
     Route: 048
     Dates: start: 20110324, end: 20110329
  2. BLOPRESS (CANDESARTAN CILEXETIL) [Concomitant]
  3. LASIX [Concomitant]
  4. ALDACTONE [Concomitant]

REACTIONS (1)
  - CEREBRAL INFARCTION [None]
